FAERS Safety Report 13013604 (Version 1)
Quarter: 2016Q4

REPORT INFORMATION
  Report Type: Spontaneous
  Country: CH (occurrence: CH)
  Receive Date: 20161209
  Receipt Date: 20161209
  Transmission Date: 20170207
  Serious: Yes (Other)
  Sender: FDA-Public Use
  Company Number: CH-PFIZER INC-2010160290

PATIENT
  Age: 77 Year
  Sex: Male

DRUGS (1)
  1. METHOTREXATE SODIUM. [Suspect]
     Active Substance: METHOTREXATE SODIUM
     Indication: MYCOSIS FUNGOIDES
     Dosage: 10 MG/M2, WEEKLY
     Route: 042
     Dates: start: 200611

REACTIONS (4)
  - Ophthalmic herpes zoster [Unknown]
  - Necrotising retinitis [Unknown]
  - Epstein-Barr virus associated lymphoproliferative disorder [Unknown]
  - B-cell lymphoma [Unknown]

NARRATIVE: CASE EVENT DATE: 200911
